FAERS Safety Report 5024616-7 (Version None)
Quarter: 2006Q2

REPORT INFORMATION
  Report Type: 
  Country: None (occurrence: None)
  Receive Date: 20060427
  Receipt Date: 20051025
  Transmission Date: 20061013
  Serious: Yes (Other)
  Sender: FDA-Public Use
  Company Number: US-JNJFOC-20051005761

PATIENT
  Age: 75 Year
  Sex: Male

DRUGS (6)
  1. RAZADYNE [Suspect]
     Indication: DEMENTIA
     Dosage: 8 MG, 2 IN 1 DAY, ORAL
     Route: 048
     Dates: start: 20050501
  2. REMINYL (GALANTAMINE HBR) TABLETS [Suspect]
     Indication: DEMENTIA
     Dosage: 4 MG, 2 IN 1 DAY, ORAL
     Route: 048
     Dates: start: 20030401, end: 20050501
  3. COUMADIN [Concomitant]
  4. ISOSORBIDE (ISOSORBIDE) [Concomitant]
  5. METOPROLOL SUCCINATE [Concomitant]
  6. LUPRON [Concomitant]

REACTIONS (1)
  - CONVULSION [None]
